FAERS Safety Report 7351297-X (Version None)
Quarter: 2011Q1

REPORT INFORMATION
  Report Type: 
  Country: None (occurrence: None)
  Receive Date: 20110314
  Receipt Date: 20110304
  Transmission Date: 20110831
  Serious: Yes (Other)
  Sender: FDA-Public Use
  Company Number: FR-KINGPHARMUSA00001-K201100230

PATIENT
  Age: 66 Year
  Sex: Female

DRUGS (1)
  1. ALTACE [Suspect]
     Dosage: 40 MG, QD
     Route: 048
     Dates: start: 20110201

REACTIONS (2)
  - BLOOD PRESSURE SYSTOLIC INCREASED [None]
  - OVERDOSE [None]
